FAERS Safety Report 8609117-9 (Version None)
Quarter: 2012Q3

REPORT INFORMATION
  Report Type: 
  Country: None (occurrence: None)
  Receive Date: 20120821
  Receipt Date: 20120806
  Transmission Date: 20120928
  Serious: Yes (Hospitalization)
  Sender: FDA-Public Use
  Company Number: US-ARROW-2012-14420

PATIENT
  Age: 31 Year
  Sex: Male

DRUGS (1)
  1. TRAMADOL HYDROCHLORIDE [Suspect]
     Indication: SUICIDE ATTEMPT
     Dosage: 50 MG, SINGLE
     Route: 048

REACTIONS (4)
  - OVERDOSE [None]
  - TACHYCARDIA [None]
  - TONIC CONVULSION [None]
  - DRUG SCREEN FALSE POSITIVE [None]
